FAERS Safety Report 6075884-4 (Version None)
Quarter: 2009Q1

REPORT INFORMATION
  Report Type: 
  Country: None (occurrence: None)
  Receive Date: 20090212
  Receipt Date: 20090209
  Transmission Date: 20090719
  Serious: Yes (Hospitalization, Other)
  Sender: FDA-Public Use
  Company Number: AU-AVENTIS-200910561GDDC

PATIENT
  Age: 77 Year
  Sex: Female

DRUGS (12)
  1. ARAVA [Suspect]
     Indication: RHEUMATOID ARTHRITIS
     Route: 048
     Dates: start: 20040420
  2. METHOTREXATE [Concomitant]
     Indication: RHEUMATOID ARTHRITIS
     Dosage: DOSE: UNK
  3. SULFASALAZINE [Concomitant]
     Indication: RHEUMATOID ARTHRITIS
     Dosage: DOSE: UNK
  4. FOLIC ACID [Concomitant]
     Indication: RHEUMATOID ARTHRITIS
     Dosage: DOSE: UNK
  5. ELOXATIN [Concomitant]
     Indication: EPILEPSY
     Dosage: DOSE: UNK
  6. ATENOLOL [Concomitant]
     Indication: HYPERTENSION
     Dosage: DOSE: UNK
  7. ZANIDIP [Concomitant]
     Indication: HYPERTENSION
     Dosage: DOSE: UNK
  8. OROXINE [Concomitant]
     Dosage: DOSE: UNK
  9. SOMAC [Concomitant]
     Dosage: DOSE: UNK
  10. SIMVAR [Concomitant]
     Dosage: DOSE: UNK
  11. EPILIM [Concomitant]
  12. UNKNOWN DRUG [Concomitant]

REACTIONS (2)
  - EPILEPSY [None]
  - HERPES ZOSTER [None]
